FAERS Safety Report 17691652 (Version 1)
Quarter: 2020Q2

REPORT INFORMATION
  Report Type: Spontaneous
  Country: US (occurrence: US)
  Receive Date: 20200422
  Receipt Date: 20200422
  Transmission Date: 20200714
  Serious: Yes (Other)
  Sender: FDA-Public Use
  Company Number: US-ELI_LILLY_AND_COMPANY-US202004004876

PATIENT
  Age: 61 Year
  Sex: Female

DRUGS (3)
  1. RECLAST [Concomitant]
     Active Substance: ZOLEDRONIC ACID
     Indication: OSTEOPOROSIS
  2. BYETTA [Concomitant]
     Active Substance: EXENATIDE
     Indication: PRODUCT USED FOR UNKNOWN INDICATION
  3. TRULICITY [Suspect]
     Active Substance: DULAGLUTIDE
     Indication: TYPE 2 DIABETES MELLITUS
     Dosage: 0.75 MG, UNKNOWN
     Route: 058
     Dates: start: 2019

REACTIONS (14)
  - Lung infiltration [Recovered/Resolved]
  - Ageusia [Recovered/Resolved]
  - Therapeutic response decreased [Recovering/Resolving]
  - Laryngospasm [Recovered/Resolved]
  - Hypoacusis [Unknown]
  - Viral infection [Recovered/Resolved]
  - Anosmia [Recovered/Resolved]
  - Bronchospasm [Recovered/Resolved]
  - Heart rate decreased [Recovered/Resolved]
  - Bladder disorder [Recovered/Resolved]
  - Blood glucose decreased [Recovered/Resolved]
  - Blood glucose increased [Recovered/Resolved]
  - Respiratory tract infection viral [Recovered/Resolved]
  - Influenza [Recovered/Resolved]

NARRATIVE: CASE EVENT DATE: 201911
